FAERS Safety Report 8762826 (Version 3)
Quarter: 2012Q4

REPORT INFORMATION
  Report Type: 
  Country: GB (occurrence: GB)
  Receive Date: 20120830
  Receipt Date: 20121108
  Transmission Date: 20130627
  Serious: Yes (Other)
  Sender: FDA-Public Use
  Company Number: GB-VERTEX PHARMACEUTICAL INC.-2012-020341

PATIENT

DRUGS (6)
  1. INCIVO [Suspect]
     Indication: HEPATITIS C
     Dosage: Dosage Form: Tablet
     Route: 048
     Dates: start: 20120314, end: 20120817
  2. PEGASYS [Suspect]
     Indication: HEPATITIS C
     Dosage: Dosage Form: Unspecified
     Route: 065
     Dates: start: 20120814, end: 20120817
  3. COPEGUS [Suspect]
     Indication: HEPATITIS C
     Dosage: Dosage Form: Unspecified
     Route: 065
     Dates: start: 20120814, end: 20120817
  4. ASPIRIN [Concomitant]
     Dosage: Dosage Form: Unspecified
     Route: 065
  5. COD LIVER OIL [Concomitant]
     Dosage: Dosage Form: Unspecified
     Route: 065
  6. FUCIDIN [Concomitant]
     Dosage: Dosage Form: Cream
     Route: 065

REACTIONS (1)
  - Rash [Not Recovered/Not Resolved]
